FAERS Safety Report 19403956 (Version 1)
Quarter: 2021Q2

REPORT INFORMATION
  Report Type: Report from Study
  Country: None (occurrence: US)
  Receive Date: 20210610
  Receipt Date: 20210610
  Transmission Date: 20210717
  Serious: Yes (Hospitalization, Other)
  Sender: FDA-Public Use
  Company Number: US-ABBVIE-21K-163-3941348-00

PATIENT
  Sex: Female

DRUGS (1)
  1. HUMIRA [Suspect]
     Active Substance: ADALIMUMAB
     Indication: COLITIS ULCERATIVE
     Dosage: CF
     Route: 058

REACTIONS (6)
  - Sepsis [Recovering/Resolving]
  - Blood pressure decreased [Unknown]
  - Heart rate abnormal [Unknown]
  - Wound [Unknown]
  - Proctocolectomy [Recovering/Resolving]
  - Surgery [Recovering/Resolving]
